FAERS Safety Report 11512149 (Version 1)
Quarter: 2015Q3

REPORT INFORMATION
  Report Type: Spontaneous
  Country: US (occurrence: None)
  Receive Date: 20150909
  Receipt Date: 20150909
  Transmission Date: 20151125
  Serious: Yes (Other)
  Sender: FDA-Public Use
  Company Number: M-15-009

PATIENT
  Age: 84 Year
  Sex: Male

DRUGS (7)
  1. TRUSOPT EYE DROPS [Concomitant]
  2. BYSTOLIC [Concomitant]
     Active Substance: NEBIVOLOL HYDROCHLORIDE
  3. VITAMIN D-2000 [Concomitant]
  4. CLINDAMYCIN 300MG [Suspect]
     Active Substance: CLINDAMYCIN PHOSPHATE
     Indication: PYOGENIC GRANULOMA
     Dosage: 1 CAPSULE/EVERY 6 HOURS?
     Dates: start: 20150227
  5. METAMUCIL [Concomitant]
     Active Substance: PLANTAGO SEED
  6. COZAAR [Concomitant]
     Active Substance: LOSARTAN POTASSIUM
  7. LUMIGAN EYE DROPS [Concomitant]

REACTIONS (2)
  - Hyponatraemia [None]
  - Diarrhoea [None]

NARRATIVE: CASE EVENT DATE: 20150227
